FAERS Safety Report 17367725 (Version 1)
Quarter: 2020Q1

REPORT INFORMATION
  Report Type: Spontaneous
  Country: CA (occurrence: CA)
  Receive Date: 20200204
  Receipt Date: 20200204
  Transmission Date: 20200409
  Serious: Yes (Congenital Anomaly, Other)
  Sender: FDA-Public Use
  Company Number: CA-TEVA-2020-CA-1178139

PATIENT
  Age: 57 Year
  Sex: Female

DRUGS (10)
  1. OXYCODONE HYDROCHLORIDE. [Suspect]
     Active Substance: OXYCODONE HYDROCHLORIDE
     Indication: PAIN
     Route: 048
  2. APO-METHOTREXATE [Suspect]
     Active Substance: METHOTREXATE
     Indication: PRODUCT USED FOR UNKNOWN INDICATION
     Route: 048
  3. VITAMIN B12 [Suspect]
     Active Substance: CYANOCOBALAMIN
     Indication: PRODUCT USED FOR UNKNOWN INDICATION
     Route: 065
  4. FLORASTOR [Concomitant]
     Active Substance: SACCHAROMYCES CEREVISIAE
     Indication: PRODUCT USED FOR UNKNOWN INDICATION
     Route: 065
  5. DILAUDID [Concomitant]
     Active Substance: HYDROMORPHONE HYDROCHLORIDE
     Indication: PRODUCT USED FOR UNKNOWN INDICATION
     Route: 065
  6. NYSTATIN. [Suspect]
     Active Substance: NYSTATIN
     Indication: PRODUCT USED FOR UNKNOWN INDICATION
     Dosage: 10 ML DAILY;
     Route: 048
  7. METRONIDAZOLE BENZOATE [Suspect]
     Active Substance: METRONIDAZOLE BENZOATE
     Indication: PRODUCT USED FOR UNKNOWN INDICATION
     Dosage: 1000 MILLIGRAM DAILY;
     Route: 048
  8. CIPROFLOXACIN. [Suspect]
     Active Substance: CIPROFLOXACIN
     Indication: PRODUCT USED FOR UNKNOWN INDICATION
     Dosage: 1000 MILLIGRAM DAILY;
     Route: 048
  9. FOLIC ACID. [Suspect]
     Active Substance: FOLIC ACID
     Indication: PRODUCT USED FOR UNKNOWN INDICATION
     Route: 065
  10. PEPPERMINT OIL [Concomitant]
     Active Substance: PEPPERMINT OIL
     Indication: PRODUCT USED FOR UNKNOWN INDICATION
     Route: 065

REACTIONS (29)
  - C-reactive protein increased [Unknown]
  - Nausea [Unknown]
  - Pain [Unknown]
  - Proctalgia [Unknown]
  - Skin ulcer [Unknown]
  - Vulvovaginal pain [Unknown]
  - Weight decreased [Unknown]
  - Anal fistula [Unknown]
  - Discomfort [Unknown]
  - Drug ineffective [Unknown]
  - Hydronephrosis [Unknown]
  - Colitis [Unknown]
  - Frequent bowel movements [Unknown]
  - Inflammatory bowel disease [Unknown]
  - Accessory spleen [Unknown]
  - Arteriovenous fistula site haemorrhage [Unknown]
  - Rectal ulcer [Unknown]
  - Vaginal discharge [Unknown]
  - Abdominal pain [Unknown]
  - Nephrolithiasis [Unknown]
  - Anorectal discomfort [Unknown]
  - Perineal pain [Unknown]
  - Feeling abnormal [Unknown]
  - Female genital tract fistula [Unknown]
  - Ill-defined disorder [Unknown]
  - Aphthous ulcer [Unknown]
  - Hepatic cyst [Unknown]
  - Post procedural haemorrhage [Unknown]
  - Procedural pain [Unknown]
